FAERS Safety Report 18163988 (Version 6)
Quarter: 2020Q4

REPORT INFORMATION
  Report Type: Spontaneous
  Country: US (occurrence: US)
  Receive Date: 20200818
  Receipt Date: 20201221
  Transmission Date: 20210113
  Serious: Yes (Other)
  Sender: FDA-Public Use
  Company Number: US-BIOCODEX SA-202000977

PATIENT

DRUGS (44)
  1. CLOBAZAM. [Concomitant]
     Active Substance: CLOBAZAM
     Indication: SEVERE MYOCLONIC EPILEPSY OF INFANCY
     Route: 065
  2. TOPAMAX [Concomitant]
     Active Substance: TOPIRAMATE
     Route: 065
  3. DEPAKOTE [Concomitant]
     Active Substance: DIVALPROEX SODIUM
     Indication: PRODUCT USED FOR UNKNOWN INDICATION
     Route: 065
  4. EPIDIOLEX [Concomitant]
     Active Substance: CANNABIDIOL
     Indication: PRODUCT USED FOR UNKNOWN INDICATION
     Route: 065
  5. KEPPRA [Concomitant]
     Active Substance: LEVETIRACETAM
     Indication: PRODUCT USED FOR UNKNOWN INDICATION
     Route: 065
  6. DIACOMIT [Suspect]
     Active Substance: STIRIPENTOL
     Dosage: 1000 MG TWICE DAILY
     Route: 065
  7. BRIVIACT [Concomitant]
     Active Substance: BRIVARACETAM
     Indication: PRODUCT USED FOR UNKNOWN INDICATION
     Route: 065
  8. LAMOTRIGINE. [Concomitant]
     Active Substance: LAMOTRIGINE
     Indication: PRODUCT USED FOR UNKNOWN INDICATION
     Route: 065
  9. TOPAMAX [Concomitant]
     Active Substance: TOPIRAMATE
     Indication: PRODUCT USED FOR UNKNOWN INDICATION
     Route: 065
  10. TOPAMAX [Concomitant]
     Active Substance: TOPIRAMATE
     Route: 065
  11. ETHOSUXIMIDE. [Concomitant]
     Active Substance: ETHOSUXIMIDE
     Indication: PRODUCT USED FOR UNKNOWN INDICATION
     Route: 065
  12. FYCOMPA [Concomitant]
     Active Substance: PERAMPANEL
     Indication: PRODUCT USED FOR UNKNOWN INDICATION
     Route: 065
  13. LYRICA [Concomitant]
     Active Substance: PREGABALIN
     Indication: PRODUCT USED FOR UNKNOWN INDICATION
     Route: 065
  14. VIMPAT [Concomitant]
     Active Substance: LACOSAMIDE
     Indication: PRODUCT USED FOR UNKNOWN INDICATION
     Route: 065
  15. DIACOMIT [Suspect]
     Active Substance: STIRIPENTOL
     Dosage: 1000 MG TWICE DAILY
     Route: 065
  16. CLOBAZAM. [Concomitant]
     Active Substance: CLOBAZAM
     Route: 065
  17. CLOBAZAM. [Concomitant]
     Active Substance: CLOBAZAM
     Route: 065
  18. TOPAMAX [Concomitant]
     Active Substance: TOPIRAMATE
     Route: 065
  19. SIROLIMUS. [Concomitant]
     Active Substance: SIROLIMUS
     Indication: PRODUCT USED FOR UNKNOWN INDICATION
     Route: 065
  20. PREDNISONE. [Concomitant]
     Active Substance: PREDNISONE
     Route: 065
  21. DIACOMIT [Suspect]
     Active Substance: STIRIPENTOL
     Indication: LENNOX-GASTAUT SYNDROME
     Dosage: 500MG; 1000 MG TWICE A DAY
     Route: 065
     Dates: start: 20200529
  22. CLOBAZAM. [Concomitant]
     Active Substance: CLOBAZAM
     Route: 065
  23. CLOBAZAM. [Concomitant]
     Active Substance: CLOBAZAM
     Route: 065
  24. DEPAKOTE [Concomitant]
     Active Substance: DIVALPROEX SODIUM
     Route: 065
  25. SIROLIMUS. [Concomitant]
     Active Substance: SIROLIMUS
     Route: 065
  26. PREDNISONE. [Concomitant]
     Active Substance: PREDNISONE
     Route: 065
  27. ONFI [Concomitant]
     Active Substance: CLOBAZAM
     Indication: PRODUCT USED FOR UNKNOWN INDICATION
     Route: 065
  28. ZONISAMIDE. [Concomitant]
     Active Substance: ZONISAMIDE
     Indication: PRODUCT USED FOR UNKNOWN INDICATION
     Route: 065
  29. CLOBAZAM. [Concomitant]
     Active Substance: CLOBAZAM
     Indication: SEVERE MYOCLONIC EPILEPSY OF INFANCY
     Route: 065
  30. SIROLIMUS. [Concomitant]
     Active Substance: SIROLIMUS
     Route: 065
  31. PHENOBARBITAL. [Concomitant]
     Active Substance: PHENOBARBITAL
     Indication: PRODUCT USED FOR UNKNOWN INDICATION
     Route: 065
  32. DIACOMIT [Suspect]
     Active Substance: STIRIPENTOL
     Dosage: 500MG; 1000 MG TWICE A DAY
     Route: 065
  33. CLOBAZAM. [Concomitant]
     Active Substance: CLOBAZAM
     Route: 065
  34. TOPAMAX [Concomitant]
     Active Substance: TOPIRAMATE
     Route: 065
  35. DEPAKOTE [Concomitant]
     Active Substance: DIVALPROEX SODIUM
     Route: 065
  36. DEPAKOTE [Concomitant]
     Active Substance: DIVALPROEX SODIUM
     Route: 065
  37. SIROLIMUS. [Concomitant]
     Active Substance: SIROLIMUS
     Route: 065
  38. SIROLIMUS. [Concomitant]
     Active Substance: SIROLIMUS
     Route: 065
  39. PREDNISONE. [Concomitant]
     Active Substance: PREDNISONE
     Route: 065
  40. TOPAMAX [Concomitant]
     Active Substance: TOPIRAMATE
     Route: 065
  41. DEPAKOTE [Concomitant]
     Active Substance: DIVALPROEX SODIUM
     Route: 065
  42. PREDNISONE. [Concomitant]
     Active Substance: PREDNISONE
     Indication: PRODUCT USED FOR UNKNOWN INDICATION
     Route: 065
  43. PREDNISONE. [Concomitant]
     Active Substance: PREDNISONE
     Route: 065
  44. TRILEPTAL [Concomitant]
     Active Substance: OXCARBAZEPINE
     Indication: PRODUCT USED FOR UNKNOWN INDICATION
     Route: 065

REACTIONS (7)
  - Balance disorder [Unknown]
  - Aspartate aminotransferase increased [Unknown]
  - Upper limb fracture [Unknown]
  - Cellulitis [Unknown]
  - Product use in unapproved indication [Unknown]
  - Somnolence [Unknown]
  - Arthralgia [Unknown]
